FAERS Safety Report 4931699-9 (Version None)
Quarter: 2006Q1

REPORT INFORMATION
  Report Type: 
  Country: None (occurrence: None)
  Receive Date: 20060303
  Receipt Date: 20060124
  Transmission Date: 20060701
  Serious: No
  Sender: FDA-Public Use
  Company Number: US-BRISTOL-MYERS SQUIBB COMPANY-13259593

PATIENT
  Age: 59 Year
  Sex: Female

DRUGS (4)
  1. ERBITUX [Suspect]
     Indication: NEOPLASM MALIGNANT
     Dosage: 764 MG INITIATED/DISCONTINUED AFTER 2 CC'S.  RESTARTED AND COMPLETED WITHOUT ADVERSE EFFECT.
     Route: 042
     Dates: start: 20060123, end: 20060123
  2. BENADRYL [Concomitant]
     Indication: PREMEDICATION
     Dates: start: 20060123
  3. PREDNISONE [Concomitant]
     Indication: PREMEDICATION
     Dosage: 40 MG FOUR X A DAY FOR 8 DOSES.
     Dates: start: 20060123
  4. TAGAMET [Concomitant]
     Indication: PREMEDICATION
     Dosage: 300 MG FOUR TIMES A DAY FOR 8 DOSES.
     Dates: start: 20060123

REACTIONS (1)
  - PRURITUS [None]
